FAERS Safety Report 6554529-0 (Version None)
Quarter: 2010Q1

REPORT INFORMATION
  Report Type: 
  Country: None (occurrence: None)
  Receive Date: 20100127
  Receipt Date: 20100118
  Transmission Date: 20100710
  Serious: Yes (Other)
  Sender: FDA-Public Use
  Company Number: PHHY2009DE47809

PATIENT
  Sex: Female

DRUGS (2)
  1. ESTRADERM [Suspect]
     Indication: HORMONE REPLACEMENT THERAPY
     Dosage: 75 UG PER 24 HOUR
     Route: 062
     Dates: start: 20091001
  2. ESTRADERM [Suspect]
     Dosage: 50 UG PER 24 HOUR
     Route: 062

REACTIONS (4)
  - BLOOD GLUCOSE DECREASED [None]
  - DIZZINESS [None]
  - GASTRIC OPERATION [None]
  - NAUSEA [None]
